FAERS Safety Report 5087145-0 (Version None)
Quarter: 2006Q3

REPORT INFORMATION
  Report Type: 
  Country: None (occurrence: None)
  Receive Date: 20060821
  Receipt Date: 20060807
  Transmission Date: 20061208
  Serious: Yes (Life-Threatening, Hospitalization)
  Sender: FDA-Public Use
  Company Number: GB-2006-015128

PATIENT
  Age: 44 Year
  Sex: Female
  Weight: 61 kg

DRUGS (5)
  1. BETAFERON (INTERFERON BETA - 1B) INJECTION, 250?G [Suspect]
     Indication: MULTIPLE SCLEROSIS
     Dosage: 250 UG, SUBCUTANEOUS
     Route: 058
     Dates: start: 20060116, end: 20060317
  2. STEMETIL ^AVENTIS PHARMA^ (PROCHLORPERAZINE) [Concomitant]
  3. TRAMADOL HCL [Concomitant]
  4. ACETAMINOPHEN W/ CODEINE [Concomitant]
  5. ACETAMINOPHEN [Concomitant]

REACTIONS (6)
  - ALANINE AMINOTRANSFERASE INCREASED [None]
  - ALPHA 1 FOETOPROTEIN INCREASED [None]
  - BLOOD ALKALINE PHOSPHATASE INCREASED [None]
  - BLOOD BILIRUBIN INCREASED [None]
  - JAUNDICE [None]
  - MALAISE [None]
